FAERS Safety Report 10614359 (Version 1)
Quarter: 2014Q4

REPORT INFORMATION
  Report Type: Spontaneous
  Country: DE (occurrence: DE)
  Receive Date: 20141128
  Receipt Date: 20141128
  Transmission Date: 20150529
  Serious: Yes (Life-Threatening)
  Sender: FDA-Public Use
  Company Number: PHHY2014DE154289

PATIENT
  Sex: Male

DRUGS (2)
  1. LEPONEX [Suspect]
     Active Substance: CLOZAPINE
     Indication: CLUSTER HEADACHE
     Route: 048
     Dates: end: 201405
  2. LEPONEX [Suspect]
     Active Substance: CLOZAPINE
     Indication: OFF LABEL USE

REACTIONS (11)
  - Angina pectoris [Unknown]
  - Cluster headache [Not Recovered/Not Resolved]
  - Fear of death [Unknown]
  - Anxiety [Unknown]
  - Quality of life decreased [Unknown]
  - Dyspnoea [Unknown]
  - Chest discomfort [Unknown]
  - Pruritus [Unknown]
  - Fatigue [Unknown]
  - Myalgia [Unknown]
  - Drug withdrawal syndrome [Unknown]

NARRATIVE: CASE EVENT DATE: 2014
